FAERS Safety Report 24790309 (Version 3)
Quarter: 2025Q1

REPORT INFORMATION
  Report Type: Report from Study
  Country: US (occurrence: US)
  Receive Date: 20241230
  Receipt Date: 20250123
  Transmission Date: 20250409
  Serious: Yes (Death, Hospitalization)
  Sender: SECURA BIO
  Company Number: US-SECURA BIO, INC.-SECUR-2024-US000002

PATIENT
  Age: 72 Year
  Sex: Male
  Weight: 58.6 kg

DRUGS (3)
  1. DUVELISIB [Suspect]
     Active Substance: DUVELISIB
     Indication: Cutaneous T-cell lymphoma
     Route: 065
     Dates: start: 20241112, end: 20241126
  2. NIVOLUMAB [Suspect]
     Active Substance: NIVOLUMAB
     Indication: Cutaneous T-cell lymphoma
     Route: 065
     Dates: start: 20241112, end: 20241112
  3. VANCOMYCIN [Concomitant]
     Active Substance: VANCOMYCIN
     Indication: Staphylococcal bacteraemia

REACTIONS (4)
  - Fatigue [Not Recovered/Not Resolved]
  - Pancreatitis [Not Recovered/Not Resolved]
  - Decreased appetite [Recovered/Resolved]
  - Disease progression [Fatal]

NARRATIVE: CASE EVENT DATE: 20241128
